FAERS Safety Report 20183691 (Version 2)
Quarter: 2021Q4

REPORT INFORMATION
  Report Type: Spontaneous
  Country: US (occurrence: US)
  Receive Date: 20211214
  Receipt Date: 20211227
  Transmission Date: 20220303
  Serious: No
  Sender: FDA-Public Use
  Company Number: US-BAUSCH-BL-2021-040157

PATIENT
  Sex: Female

DRUGS (3)
  1. TETRACAINE HYDROCHLORIDE [Suspect]
     Active Substance: TETRACAINE HYDROCHLORIDE
     Indication: Corneal abrasion
     Dosage: BOTH EYES
     Route: 065
     Dates: start: 20210314
  2. TETRACAINE HYDROCHLORIDE [Suspect]
     Active Substance: TETRACAINE HYDROCHLORIDE
     Indication: Product use in unapproved indication
     Route: 065
     Dates: start: 2021
  3. ERYTHROMYCIN [Suspect]
     Active Substance: ERYTHROMYCIN
     Indication: Product used for unknown indication
     Dosage: IN EACH EYE AS DIRECTED
     Route: 065
     Dates: start: 2021

REACTIONS (5)
  - Fear of disease [Unknown]
  - Instillation site foreign body sensation [Unknown]
  - Photophobia [Unknown]
  - Product use in unapproved indication [Unknown]
  - Product prescribing error [Unknown]

NARRATIVE: CASE EVENT DATE: 20210101
